FAERS Safety Report 9366657 (Version 1)
Quarter: 2013Q2

REPORT INFORMATION
  Report Type: Spontaneous
  Country: NL (occurrence: NL)
  Receive Date: 20130625
  Receipt Date: 20130625
  Transmission Date: 20140414
  Serious: Yes (Other)
  Sender: FDA-Public Use
  Company Number: NL-PFIZER INC-2013185797

PATIENT
  Age: 56 Year
  Sex: Female
  Weight: 60 kg

DRUGS (2)
  1. FLUCONAZOLE [Suspect]
     Indication: VULVOVAGINAL CANDIDIASIS
     Dosage: 150 MG, 1X/DAY
     Dates: start: 20130606
  2. PLAQUENIL [Suspect]
     Dosage: 200 MG, 5 TIMES PER 1 WEEK
     Dates: start: 19950101

REACTIONS (1)
  - Cutaneous lupus erythematosus [Recovering/Resolving]
